FAERS Safety Report 7049528-9 (Version None)
Quarter: 2010Q4

REPORT INFORMATION
  Report Type: 
  Country: None (occurrence: None)
  Receive Date: 20101012
  Receipt Date: 20100923
  Transmission Date: 20110411
  Serious: Yes (Hospitalization)
  Sender: FDA-Public Use
  Company Number: AMAG201000366

PATIENT
  Age: 61 Year
  Sex: Male

DRUGS (10)
  1. FERAHEME [Suspect]
     Indication: IRON DEFICIENCY ANAEMIA
     Dosage: 4 ML, (68 MG) SINGLE, INTRAVENOUS
     Route: 042
     Dates: start: 20100726, end: 20100726
  2. FERAHEME [Suspect]
     Indication: NEPHROGENIC ANAEMIA
     Dosage: 4 ML, (68 MG) SINGLE, INTRAVENOUS
     Route: 042
     Dates: start: 20100726, end: 20100726
  3. CLONAZEPAM [Concomitant]
  4. OMEPRAZOLE [Concomitant]
  5. FUROSEMIDE (FUROSEMIDE SODIUM) [Concomitant]
  6. LISINOPRIL (LISINOPRIL DIHYDRATE) [Concomitant]
  7. PLAVIX [Concomitant]
  8. JANUVIA [Concomitant]
  9. GLYBURIDE [Concomitant]
  10. CRESTOR [Concomitant]

REACTIONS (10)
  - APNOEA [None]
  - BRADYCARDIA [None]
  - EPIGASTRIC DISCOMFORT [None]
  - FATIGUE [None]
  - HEART SOUNDS ABNORMAL [None]
  - HYPERGLYCAEMIA [None]
  - HYPERSENSITIVITY [None]
  - HYPOTENSION [None]
  - LOSS OF CONSCIOUSNESS [None]
  - WHITE BLOOD CELL COUNT INCREASED [None]
